FAERS Safety Report 6661144-7 (Version None)
Quarter: 2010Q1

REPORT INFORMATION
  Report Type: 
  Country: None (occurrence: None)
  Receive Date: 20100331
  Receipt Date: 20100324
  Transmission Date: 20100710
  Serious: Yes (Death)
  Sender: FDA-Public Use
  Company Number: A0833344A

PATIENT
  Sex: Female
  Weight: 57 kg

DRUGS (4)
  1. SERETIDE [Suspect]
     Indication: PLEURAL EFFUSION
     Dosage: 1PUFF TWICE PER DAY
     Route: 055
     Dates: start: 20091021, end: 20091104
  2. ATROVENT [Concomitant]
     Dosage: 20DROP EIGHT TIMES PER DAY
     Route: 055
     Dates: start: 20090801, end: 20091101
  3. DOLAMIN [Concomitant]
     Dosage: 1TAB TWICE PER DAY
     Dates: start: 20091026, end: 20091120
  4. CELEBRA [Concomitant]
     Dosage: 1TAB THREE TIMES PER DAY
     Dates: start: 20091021, end: 20091026

REACTIONS (2)
  - CARDIO-RESPIRATORY ARREST [None]
  - OVARIAN CANCER [None]
